FAERS Safety Report 5261674-9 (Version None)
Quarter: 2007Q1

REPORT INFORMATION
  Report Type: 
  Country: None (occurrence: None)
  Receive Date: 20061218
  Receipt Date: 20060823
  Transmission Date: 20070707
  Serious: No
  Sender: FDA-Public Use
  Company Number: US200608005254

PATIENT
  Age: 64 Year
  Sex: Male

DRUGS (1)
  1. CIALIS [Suspect]
     Dosage: 20 MG,
     Dates: start: 20060801

REACTIONS (3)
  - BLOOD TESTOSTERONE INCREASED [None]
  - DRUG INEFFECTIVE [None]
  - INTENTIONAL OVERDOSE [None]
